FAERS Safety Report 17174019 (Version 2)
Quarter: 2020Q1

REPORT INFORMATION
  Report Type: Spontaneous
  Country: GB (occurrence: GB)
  Receive Date: 20191218
  Receipt Date: 20200123
  Transmission Date: 20200409
  Serious: Yes (Hospitalization, Other)
  Sender: FDA-Public Use
  Company Number: GB-ROCHE-2499656

PATIENT
  Sex: Female

DRUGS (2)
  1. GAZYVARO [Suspect]
     Active Substance: OBINUTUZUMAB
     Indication: B-CELL LYMPHOMA
  2. GAZYVARO [Suspect]
     Active Substance: OBINUTUZUMAB
     Indication: CHRONIC LYMPHOCYTIC LEUKAEMIA
     Dosage: ON DAY 1 AND 8
     Route: 042
     Dates: start: 20190508, end: 20190508

REACTIONS (3)
  - Coronary artery disease [Unknown]
  - Cardiac failure [Unknown]
  - Chest discomfort [Recovered/Resolved]

NARRATIVE: CASE EVENT DATE: 20190508
